FAERS Safety Report 16405587 (Version 1)
Quarter: 2019Q2

REPORT INFORMATION
  Report Type: Spontaneous
  Country: US (occurrence: US)
  Receive Date: 20190607
  Receipt Date: 20190607
  Transmission Date: 20190711
  Serious: Yes (Other)
  Sender: FDA-Public Use
  Company Number: US-FRESENIUS KABI-FK201906328

PATIENT
  Age: 34 Year
  Sex: Female

DRUGS (3)
  1. LIDOCAINE/EPINEPHRINE (MANUFACTURER UNKNOWN) [Suspect]
     Active Substance: EPINEPHRINE BITARTRATE\LIDOCAINE HYDROCHLORIDE
     Indication: EPIDURAL ANAESTHESIA
     Dosage: 3 ML OF LIDOCAINE1.5 PERCENT WITH EPINEPHRINE 1;200000
     Route: 008
  2. BUPIVACAINE (MANUFACTURER UNKNOWN) [Suspect]
     Active Substance: BUPIVACAINE
     Indication: EPIDURAL ANAESTHESIA
     Dosage: 15 ML OF 0.0625 PERCENT
     Route: 008
  3. FENTANYL (MANUFACTURER UNKNOWN) [Suspect]
     Active Substance: FENTANYL
     Indication: EPIDURAL ANAESTHESIA
     Dosage: 2 UG/ML
     Route: 008

REACTIONS (3)
  - Arrhythmia [Recovered/Resolved]
  - Syncope [Recovered/Resolved]
  - Exposure during pregnancy [Recovered/Resolved]
